FAERS Safety Report 9400636 (Version 1)
Quarter: 2013Q3

REPORT INFORMATION
  Report Type: Report from Study
  Country: FR (occurrence: FR)
  Receive Date: 20130715
  Receipt Date: 20130715
  Transmission Date: 20140515
  Serious: Yes (Hospitalization)
  Sender: FDA-Public Use
  Company Number: FR-BRISTOL-MYERS SQUIBB COMPANY-19075951

PATIENT
  Age: 75 Year
  Sex: Male

DRUGS (2)
  1. IPILIMUMAB [Suspect]
     Indication: METASTASES TO CENTRAL NERVOUS SYSTEM
     Route: 042
     Dates: start: 20130531
  2. IPILIMUMAB [Suspect]
     Indication: MALIGNANT MELANOMA
     Route: 042
     Dates: start: 20130531

REACTIONS (2)
  - Hemiplegia [Recovered/Resolved]
  - Aphasia [Not Recovered/Not Resolved]
